FAERS Safety Report 16873882 (Version 2)
Quarter: 2019Q4

REPORT INFORMATION
  Report Type: Spontaneous
  Country: HR (occurrence: HR)
  Receive Date: 20191001
  Receipt Date: 20191127
  Transmission Date: 20200122
  Serious: Yes (Other)
  Sender: FDA-Public Use
  Company Number: HR-SAMSUNG BIOEPIS-SB-2019-28451

PATIENT
  Age: 40 Year
  Sex: Female

DRUGS (1)
  1. BENEPALI [Suspect]
     Active Substance: ETANERCEPT
     Indication: ANKYLOSING SPONDYLITIS
     Route: 058
     Dates: start: 20190124, end: 20190124

REACTIONS (2)
  - Hand fracture [Unknown]
  - Chondrosarcoma [Unknown]

NARRATIVE: CASE EVENT DATE: 20190130
